FAERS Safety Report 9158282 (Version 1)
Quarter: 2013Q1

REPORT INFORMATION
  Report Type: Spontaneous
  Country: US (occurrence: US)
  Receive Date: 20130312
  Receipt Date: 20130312
  Transmission Date: 20140127
  Serious: Yes (Hospitalization)
  Sender: FDA-Public Use
  Company Number: US-BAYER-2013-028341

PATIENT
  Age: 26 Year
  Sex: Female
  Weight: 82.54 kg

DRUGS (5)
  1. YASMIN [Suspect]
  2. OCELLA [Suspect]
  3. FISH OIL [Concomitant]
  4. TYLENOL [Concomitant]
  5. MOTRIN [Concomitant]

REACTIONS (1)
  - Mesenteric vein thrombosis [None]
